FAERS Safety Report 10413207 (Version 1)
Quarter: 2014Q3

REPORT INFORMATION
  Report Type: Spontaneous
  Country: US (occurrence: None)
  Receive Date: 20140825
  Receipt Date: 20140825
  Transmission Date: 20150326
  Serious: Yes (Other)
  Sender: FDA-Public Use
  Company Number: AUR-APL-2014-08927

PATIENT
  Sex: Female

DRUGS (2)
  1. METFORMIN 1000MG (METFORMIN) UNKNOWN, 1000MG [Suspect]
     Active Substance: METFORMIN HYDROCHLORIDE
     Indication: PRODUCT USED FOR UNKNOWN INDICATION
     Route: 048
  2. GLIPIZIDE (GLIPIZIDE) [Suspect]
     Active Substance: GLIPIZIDE
     Indication: PRODUCT USED FOR UNKNOWN INDICATION
     Route: 048
     Dates: end: 201401

REACTIONS (4)
  - Obesity [None]
  - Diabetes mellitus inadequate control [None]
  - Gastric bypass [None]
  - Decreased appetite [None]
